FAERS Safety Report 9639907 (Version 1)
Quarter: 2013Q4

REPORT INFORMATION
  Report Type: Spontaneous
  Country: US (occurrence: None)
  Receive Date: 20131021
  Receipt Date: 20131021
  Transmission Date: 20140711
  Serious: No
  Sender: FDA-Public Use
  Company Number: None

PATIENT
  Sex: Female
  Weight: 66.68 kg

DRUGS (12)
  1. ROZEREM [Suspect]
     Indication: INSOMNIA
     Dosage: 1 PILL  AT BEDTIME  BY MOUTH
     Route: 048
     Dates: start: 20130925, end: 20130926
  2. LOSARTAN HCT [Concomitant]
  3. LEVOTHYROXINE [Concomitant]
  4. CLONAZEPAM [Concomitant]
  5. KRILL OIL [Concomitant]
  6. CALCIUM [Concomitant]
  7. VIT D [Concomitant]
  8. POTASSIUM [Concomitant]
  9. MAGNESIUM [Concomitant]
  10. WOMENS VIT. [Concomitant]
  11. BLACK CURRANT OIL [Concomitant]
  12. 50 PLUS VIT [Concomitant]

REACTIONS (5)
  - Insomnia [None]
  - Hyperhidrosis [None]
  - Feeling hot [None]
  - Tremor [None]
  - Headache [None]
